FAERS Safety Report 15264089 (Version 3)
Quarter: 2018Q4

REPORT INFORMATION
  Report Type: Spontaneous
  Country: US (occurrence: US)
  Receive Date: 20180810
  Receipt Date: 20181009
  Transmission Date: 20190204
  Serious: Yes (Other)
  Sender: FDA-Public Use
  Company Number: US-JNJFOC-20180739226

PATIENT
  Sex: Female

DRUGS (4)
  1. GENERIC CONCERTA [Suspect]
     Active Substance: METHYLPHENIDATE HYDROCHLORIDE
     Indication: PRODUCT USED FOR UNKNOWN INDICATION
     Route: 065
  2. CONCERTA [Suspect]
     Active Substance: METHYLPHENIDATE HYDROCHLORIDE
     Indication: PRODUCT USED FOR UNKNOWN INDICATION
     Route: 048
  3. CONCERTA [Suspect]
     Active Substance: METHYLPHENIDATE HYDROCHLORIDE
     Indication: PRODUCT USED FOR UNKNOWN INDICATION
     Route: 048
  4. CONCERTA [Suspect]
     Active Substance: METHYLPHENIDATE HYDROCHLORIDE
     Indication: PRODUCT USED FOR UNKNOWN INDICATION
     Route: 048
     Dates: start: 2018, end: 20180816

REACTIONS (15)
  - Muscle disorder [Unknown]
  - Toxicity to various agents [Unknown]
  - Asthenia [Unknown]
  - Headache [Unknown]
  - Syncope [Unknown]
  - Product dose omission [Unknown]
  - Hypoaesthesia [Unknown]
  - Eating disorder [Unknown]
  - Vision blurred [Unknown]
  - Fatigue [Unknown]
  - Tunnel vision [Unknown]
  - Suspected counterfeit product [Unknown]
  - Product size issue [Unknown]
  - Product label issue [Unknown]
  - Movement disorder [Unknown]

NARRATIVE: CASE EVENT DATE: 2015
